FAERS Safety Report 24567090 (Version 1)
Quarter: 2024Q4

REPORT INFORMATION
  Report Type: Spontaneous
  Country: CN (occurrence: CN)
  Receive Date: 20241030
  Receipt Date: 20241030
  Transmission Date: 20250115
  Serious: Yes (Hospitalization)
  Sender: NOVO NORDISK
  Company Number: None

PATIENT
  Age: 32 Year
  Sex: Female
  Weight: 70.6 kg

DRUGS (2)
  1. NOVORAPID [Suspect]
     Active Substance: INSULIN ASPART
     Indication: Diabetes complicating pregnancy
     Dosage: 18 IU, TID (BEFORE THREE MEALS)
     Route: 058
     Dates: start: 20240708, end: 20240809
  2. LEVEMIR [Concomitant]
     Active Substance: INSULIN DETEMIR
     Indication: Diabetes complicating pregnancy
     Dosage: 22 IU, QD (ONCE EVERY NIGHT)
     Route: 058
     Dates: start: 20240708

REACTIONS (5)
  - Bile acids increased [Unknown]
  - Injection site rash [Recovering/Resolving]
  - Injection site pruritus [Recovering/Resolving]
  - Injection site induration [Unknown]
  - Maternal exposure during pregnancy [Recovered/Resolved]

NARRATIVE: CASE EVENT DATE: 20240708
